FAERS Safety Report 8162065-3 (Version None)
Quarter: 2012Q1

REPORT INFORMATION
  Report Type: 
  Country: None (occurrence: None)
  Receive Date: 20120224
  Receipt Date: 20110616
  Transmission Date: 20120608
  Serious: No
  Sender: FDA-Public Use
  Company Number: US-BRISTOL-MYERS SQUIBB COMPANY-15840630

PATIENT
  Age: 79 Year
  Sex: Male

DRUGS (3)
  1. LANTUS [Suspect]
     Indication: TYPE 2 DIABETES MELLITUS
     Dosage: 1DF= PARENTERAL,INJE, SOL,100IU/ML.ALSO SC ON 2007-UNK,2011-ONG.8 UNITS EVE DAILY.PREV 14 UNIT MOR
     Route: 051
     Dates: start: 20070101
  2. METFORMIN HCL [Suspect]
     Indication: TYPE 2 DIABETES MELLITUS
  3. NEBIVOLOL HCL [Suspect]
     Indication: TYPE 2 DIABETES MELLITUS
     Dosage: 2008-UNK UNK-ONG.
     Dates: start: 20080101

REACTIONS (1)
  - BLOOD GLUCOSE DECREASED [None]
